FAERS Safety Report 12989069 (Version 1)
Quarter: 2016Q4

REPORT INFORMATION
  Report Type: Spontaneous
  Country: US (occurrence: US)
  Receive Date: 20161201
  Receipt Date: 20161201
  Transmission Date: 20170207
  Serious: Yes (Other)
  Sender: FDA-Public Use
  Company Number: GXBR2016US003478

PATIENT
  Sex: Male

DRUGS (1)
  1. AMPICILLIN CAPSULES USP [Suspect]
     Active Substance: AMPICILLIN
     Indication: WOUND INFECTION
     Dosage: UNK DF, UNK
     Route: 065
     Dates: start: 201602

REACTIONS (2)
  - End stage renal disease [Unknown]
  - Renal injury [Unknown]
